FAERS Safety Report 4312533-7 (Version None)
Quarter: 2004Q1

REPORT INFORMATION
  Report Type: 
  Country: None (occurrence: None)
  Receive Date: 20040305
  Receipt Date: 20040128
  Transmission Date: 20041129
  Serious: Yes (Other)
  Sender: FDA-Public Use
  Company Number: PHFR2004GB00817

PATIENT
  Age: 57 Year
  Sex: Female
  Weight: 62 kg

DRUGS (7)
  1. FEMARA [Suspect]
     Indication: BREAST CANCER
     Dosage: 2.5 MG, QD
     Route: 048
     Dates: start: 20031201, end: 20040101
  2. MAGNESIUM [Concomitant]
     Indication: MINERAL SUPPLEMENTATION
     Dosage: 480 MG, QD
     Route: 048
     Dates: start: 20031001
  3. ALFACALCIDOL [Concomitant]
     Indication: BLOOD CALCIUM
     Dosage: 1 UG, QD
     Route: 048
     Dates: start: 20030924
  4. PROPRANOLOL [Concomitant]
     Indication: HYPERTENSION
     Dosage: 160 MG, QD
     Route: 048
     Dates: end: 20040122
  5. FELODIPINE [Concomitant]
     Indication: HYPERTENSION
     Dosage: 10 MG, QD
     Route: 065
  6. TERAZOSIN HCL [Concomitant]
     Indication: HYPERTENSION
     Dosage: 10 MG, QD
     Route: 065
  7. ALLOPURINOL [Concomitant]
     Indication: GOUT
     Dosage: 300MG/DAY

REACTIONS (5)
  - BLOOD CREATININE INCREASED [None]
  - BLOOD UREA INCREASED [None]
  - CREATININE RENAL CLEARANCE DECREASED [None]
  - RENAL FAILURE CHRONIC [None]
  - RENAL IMPAIRMENT [None]
